FAERS Safety Report 11078475 (Version 1)
Quarter: 2015Q2

REPORT INFORMATION
  Report Type: Spontaneous
  Country: CA (occurrence: None)
  Receive Date: 20150428
  Receipt Date: 20150428
  Transmission Date: 20150821
  Serious: Yes (Disabling, Other)
  Sender: FDA-Public Use
  Company Number: FK201501927

PATIENT
  Age: 19 Year
  Sex: Male
  Weight: 55 kg

DRUGS (76)
  1. BUSULFAN [Concomitant]
     Active Substance: BUSULFAN
  2. CEFTRIAXONE. [Concomitant]
     Active Substance: CEFTRIAXONE
  3. CLARITHROMYCIN. [Concomitant]
     Active Substance: CLARITHROMYCIN
  4. MELATONIN [Concomitant]
     Active Substance: MELATONIN
  5. MORPHINE SULFATE. [Concomitant]
     Active Substance: MORPHINE SULFATE
  6. OMEPRAZOLE. [Concomitant]
     Active Substance: OMEPRAZOLE
  7. CODEINE [Concomitant]
     Active Substance: CODEINE
  8. LEUCOVORIN (CALCIUM FOLINATE) [Concomitant]
     Active Substance: LEUCOVORIN
  9. METHYLPREDNISOLONE NOS [Concomitant]
     Active Substance: METHYLPREDNISOLONE OR METHYLPREDNISOLONE ACETATE
  10. NEULASTA [Concomitant]
     Active Substance: PEGFILGRASTIM
  11. PENICILLIN (BENZYLPENICILLIN) [Concomitant]
     Active Substance: PENICILLIN G
  12. MITOXANTRONE [Suspect]
     Active Substance: MITOXANTRONE HYDROCHLORIDE
     Indication: PRODUCT USED FOR UNKNOWN INDICATION
  13. PREDNISONE (PREDNISONE) (PREDNISONE) [Suspect]
     Active Substance: PREDNISONE
     Indication: PRODUCT USED FOR UNKNOWN INDICATION
     Route: 048
  14. CHOLECALCIFEROL [Concomitant]
     Active Substance: CHOLECALCIFEROL
  15. CEFTAZIDIME. [Concomitant]
     Active Substance: CEFTAZIDIME
  16. CEPHALEXIN (CEFALEXIN) [Concomitant]
     Active Substance: CEPHALEXIN
  17. CIPROFLOXACIN. [Concomitant]
     Active Substance: CIPROFLOXACIN
  18. DESIPRAMINE [Concomitant]
     Active Substance: DESIPRAMINE
  19. HYDROCORTISONE. [Concomitant]
     Active Substance: HYDROCORTISONE
  20. MEROPENEM. [Concomitant]
     Active Substance: MEROPENEM
  21. METHOTREXATE [Concomitant]
     Active Substance: METHOTREXATE
  22. MIRTAZAPINE. [Concomitant]
     Active Substance: MIRTAZAPINE
  23. PENTAMIDINE ISETHIONATE [Concomitant]
     Active Substance: PENTAMIDINE ISETHIONATE
  24. TICARCILLIN [Concomitant]
     Active Substance: TICARCILLIN
  25. VANCOMYCIN [Concomitant]
     Active Substance: VANCOMYCIN
  26. CYTARABINE (CYTARABINE) (CYTARABINE) [Suspect]
     Active Substance: CYTARABINE
     Indication: PRODUCT USED FOR UNKNOWN INDICATION
  27. TIMENTIN [Suspect]
     Active Substance: CLAVULANATE POTASSIUM\TICARCILLIN DISODIUM
     Indication: PRODUCT USED FOR UNKNOWN INDICATION
  28. ALLOPURINOL. [Concomitant]
     Active Substance: ALLOPURINOL
  29. CYCLOPHOSPHAMIDE. [Concomitant]
     Active Substance: CYCLOPHOSPHAMIDE
  30. DOCUSATE [Concomitant]
     Active Substance: DOCUSATE
  31. FASTURTEC [Concomitant]
     Active Substance: RASBURICASE
  32. FLUDARABINE [Concomitant]
     Active Substance: FLUDARABINE PHOSPHATE
  33. GABAPENTIN. [Concomitant]
     Active Substance: GABAPENTIN
  34. LANSOPRAZOLE. [Concomitant]
     Active Substance: LANSOPRAZOLE
  35. MAGNESIUM SULFATE. [Concomitant]
     Active Substance: MAGNESIUM SULFATE
  36. VORICONAZOLE. [Concomitant]
     Active Substance: VORICONAZOLE
  37. CANCIDAS (CASPOFUNGIN ACETATE) [Concomitant]
  38. DIGOXIN. [Concomitant]
     Active Substance: DIGOXIN
  39. HYDROMORPHONE [Concomitant]
     Active Substance: HYDROMORPHONE
  40. MAGNESIUM [Concomitant]
     Active Substance: MAGNESIUM
  41. MYCOPHENOLATE MOFETIL. [Concomitant]
     Active Substance: MYCOPHENOLATE MOFETIL
  42. PIPERACILLIN/TAZOBACTAM /PIP/TAZO) [Concomitant]
  43. RANITIDINE [Concomitant]
     Active Substance: RANITIDINE\RANITIDINE HYDROCHLORIDE
  44. SPIRONOLACTONE. [Concomitant]
     Active Substance: SPIRONOLACTONE
  45. TAMIFLU [Concomitant]
     Active Substance: OSELTAMIVIR PHOSPHATE
  46. TOBRAMYCIN. [Concomitant]
     Active Substance: TOBRAMYCIN
  47. SULFAMETHOXAZOLE AND TRIMETHOPRIM [Concomitant]
     Active Substance: SULFAMETHOXAZOLE\TRIMETHOPRIM
  48. URSODEOXYCHOLIC ACID [Concomitant]
     Active Substance: URSODIOL
  49. ACYCLOVIR. [Concomitant]
     Active Substance: ACYCLOVIR
  50. ALTEPLASE [Concomitant]
     Active Substance: ALTEPLASE
  51. DAUNORUBICIN [Concomitant]
     Active Substance: DAUNORUBICIN
  52. HYDROXYZINE [Concomitant]
     Active Substance: HYDROXYZINE\HYDROXYZINE HYDROCHLORIDE
  53. LEVOFLOXACIN. [Concomitant]
     Active Substance: LEVOFLOXACIN
  54. LOSARTAN [Concomitant]
     Active Substance: LOSARTAN
  55. NAPROXEN. [Concomitant]
     Active Substance: NAPROXEN
  56. POTASSIUM CHLORIDE. [Concomitant]
     Active Substance: POTASSIUM CHLORIDE
  57. ACETAMINOPHEN (PARACETAMOL) [Concomitant]
     Active Substance: ACETAMINOPHEN
  58. AMPHOTERICIN B. [Concomitant]
     Active Substance: AMPHOTERICIN B
  59. CETIRIZINE [Concomitant]
     Active Substance: CETIRIZINE HYDROCHLORIDE
  60. ETOPOSIDE. [Concomitant]
     Active Substance: ETOPOSIDE
  61. FAMCICLOVIR. [Concomitant]
     Active Substance: FAMCICLOVIR
  62. FLUCONAZOLE. [Concomitant]
     Active Substance: FLUCONAZOLE
  63. NIFEDIPINE. [Concomitant]
     Active Substance: NIFEDIPINE
  64. NYSTATIN. [Concomitant]
     Active Substance: NYSTATIN
  65. ONDANSETRON [Concomitant]
     Active Substance: ONDANSETRON
  66. PREGABALIN. [Concomitant]
     Active Substance: PREGABALIN
  67. QUETIAPINE [Concomitant]
     Active Substance: QUETIAPINE
  68. ZINECARD (DEXRAZOXANE) [Concomitant]
  69. ZOPICLONE [Concomitant]
     Active Substance: ZOPICLONE
  70. AMITRIPTYLINE (AMITRIPTYLINE) (AMITRIPTYLINE) [Suspect]
     Active Substance: AMITRIPTYLINE
     Indication: PRODUCT USED FOR UNKNOWN INDICATION
  71. AMLODIPINE [Concomitant]
     Active Substance: AMLODIPINE BESYLATE
  72. CYCLOSPORINE (CYCLOSPORIN) [Concomitant]
  73. INSULIN [Concomitant]
     Active Substance: INSULIN NOS
  74. MESNA. [Concomitant]
     Active Substance: MESNA
  75. RELENZA (ZANAMIVIR) [Concomitant]
  76. TACROLIMUS. [Concomitant]
     Active Substance: TACROLIMUS

REACTIONS (3)
  - Back pain [None]
  - Osteonecrosis [None]
  - Arthralgia [None]
